FAERS Safety Report 9147510 (Version 1)
Quarter: 2013Q1

REPORT INFORMATION
  Report Type: Spontaneous
  Country: US (occurrence: US)
  Receive Date: 20130307
  Receipt Date: 20130307
  Transmission Date: 20140127
  Serious: Yes (Hospitalization)
  Sender: FDA-Public Use
  Company Number: US-ASTRAZENECA-2013SE13529

PATIENT
  Age: 80 Year
  Sex: Female

DRUGS (3)
  1. BRILINTA [Suspect]
     Indication: STENT PLACEMENT
     Dosage: UNKNOWN
     Route: 048
  2. ANGIOMAX [Concomitant]
     Dosage: UNKNOWN
  3. ASPIRIN [Concomitant]
     Dosage: UNKNOWN

REACTIONS (1)
  - Haemorrhage [Unknown]
